FAERS Safety Report 7999033-8 (Version None)
Quarter: 2011Q4

REPORT INFORMATION
  Report Type: 
  Country: None (occurrence: None)
  Receive Date: 20111221
  Receipt Date: 20111216
  Transmission Date: 20120403
  Serious: Yes (Other)
  Sender: FDA-Public Use
  Company Number: PT-ROCHE-GNE314040

PATIENT
  Sex: Male
  Weight: 78 kg

DRUGS (4)
  1. FLUTICASONE FUROATE [Concomitant]
     Indication: PRODUCT USED FOR UNKNOWN INDICATION
     Dosage: UNK
     Dates: start: 20100119
  2. SYMBICORT [Concomitant]
     Indication: PRODUCT USED FOR UNKNOWN INDICATION
     Dosage: UNK
     Dates: start: 20090720
  3. OMALIZUMAB [Suspect]
     Indication: ASTHMA
     Dosage: 375 MG, UNK
     Route: 058
     Dates: start: 20090914, end: 20100929
  4. MONTELUKAST SODIUM [Concomitant]
     Indication: PRODUCT USED FOR UNKNOWN INDICATION
     Dosage: UNK
     Dates: start: 20090720

REACTIONS (4)
  - DYSPNOEA [None]
  - EOSINOPHIL COUNT INCREASED [None]
  - HUMAN ANTI-HUMAN ANTIBODY TEST [None]
  - PLATELET COUNT DECREASED [None]
